FAERS Safety Report 7984386-7 (Version None)
Quarter: 2011Q4

REPORT INFORMATION
  Report Type: 
  Country: None (occurrence: None)
  Receive Date: 20111214
  Receipt Date: 20111209
  Transmission Date: 20120403
  Serious: Yes (Hospitalization, Other)
  Sender: FDA-Public Use
  Company Number: 127423

PATIENT
  Age: 28 Year
  Sex: Female

DRUGS (1)
  1. DILTIAZEM HYDROCHLORIDE [Suspect]
     Dosage: 1200MG

REACTIONS (6)
  - BRADYCARDIA [None]
  - HYPOTENSION [None]
  - MEDICATION ERROR [None]
  - TOXICITY TO VARIOUS AGENTS [None]
  - OVERDOSE [None]
  - ATRIOVENTRICULAR BLOCK [None]
